FAERS Safety Report 8793710 (Version 2)
Quarter: 2013Q4

REPORT INFORMATION
  Report Type: Spontaneous
  Country: US (occurrence: US)
  Receive Date: 20120918
  Receipt Date: 20131031
  Transmission Date: 20140711
  Serious: Yes (Life-Threatening, Hospitalization)
  Sender: FDA-Public Use
  Company Number: US-009507513-1209USA006061

PATIENT
  Age: 16 Year
  Sex: Male

DRUGS (1)
  1. SAPHRIS [Suspect]
     Dosage: 5 MG, QD
     Route: 060

REACTIONS (4)
  - Respiratory disorder [Unknown]
  - Convulsion [Unknown]
  - Musculoskeletal stiffness [Unknown]
  - Dystonia [Unknown]
